FAERS Safety Report 9630828 (Version 6)
Quarter: 2015Q2

REPORT INFORMATION
  Report Type: Spontaneous
  Country: US (occurrence: US)
  Receive Date: 20131018
  Receipt Date: 20150630
  Transmission Date: 20150821
  Serious: Yes (Hospitalization, Disabling, Other)
  Sender: FDA-Public Use
  Company Number: US-009507513-1310USA005505

PATIENT
  Sex: Female

DRUGS (4)
  1. FOSAMAX [Suspect]
     Active Substance: ALENDRONATE SODIUM
     Indication: OSTEOPOROSIS
     Dosage: 70 MG, QW
     Route: 048
     Dates: start: 20020320, end: 20091218
  2. FOSAMAX [Suspect]
     Active Substance: ALENDRONATE SODIUM
     Indication: OSTEOPOROSIS
     Dosage: 10 MG, QD
     Route: 048
     Dates: start: 19961023, end: 200203
  3. FORTEO [Suspect]
     Active Substance: TERIPARATIDE
     Indication: OSTEOPOROSIS
     Dosage: 20 MCG INJECTION DAILY
     Dates: start: 20040212, end: 20050629
  4. ACTONEL [Suspect]
     Active Substance: RISEDRONATE SODIUM
     Indication: OSTEOPOROSIS
     Dosage: 150 MG, QM
     Route: 048
     Dates: start: 20091209, end: 20101230

REACTIONS (44)
  - Oral surgery [Unknown]
  - Thoracic vertebral fracture [Unknown]
  - Lumbar vertebral fracture [Unknown]
  - Gastrooesophageal reflux disease [Unknown]
  - Hypertension [Unknown]
  - Rib fracture [Unknown]
  - Cartilage injury [Unknown]
  - Aortic arteriosclerosis [Unknown]
  - Spinal compression fracture [Unknown]
  - Joint arthroplasty [Unknown]
  - Femur fracture [Not Recovered/Not Resolved]
  - Spondylitis [Unknown]
  - Spinal compression fracture [Unknown]
  - Abdominal pain [Unknown]
  - Low turnover osteopathy [Unknown]
  - Fibrocystic breast disease [Unknown]
  - Bursitis [Unknown]
  - Osteoarthritis [Unknown]
  - Osteopenia [Unknown]
  - Thoracic vertebral fracture [Unknown]
  - Chest pain [Unknown]
  - Lumbarisation [Unknown]
  - Drug ineffective [Unknown]
  - Eye disorder [Unknown]
  - Rheumatoid arthritis [Unknown]
  - Nephropathy [Unknown]
  - Intervertebral disc degeneration [Unknown]
  - Cognitive disorder [Unknown]
  - Lumbar spinal stenosis [Unknown]
  - Central nervous system lesion [Unknown]
  - Hypercholesterolaemia [Unknown]
  - Neuralgia [Unknown]
  - Migraine [Unknown]
  - Breast calcifications [Unknown]
  - Lumbar vertebral fracture [Unknown]
  - Paraesthesia [Unknown]
  - Constipation [Unknown]
  - Intramedullary rod insertion [Unknown]
  - Insomnia [Unknown]
  - Cataract operation [Unknown]
  - Cataract operation [Unknown]
  - Memory impairment [Unknown]
  - Osteoarthritis [Unknown]
  - Arthralgia [Not Recovered/Not Resolved]

NARRATIVE: CASE EVENT DATE: 20000630
